FAERS Safety Report 7482181-9 (Version None)
Quarter: 2011Q2

REPORT INFORMATION
  Report Type: 
  Country: None (occurrence: None)
  Receive Date: 20110516
  Receipt Date: 20110509
  Transmission Date: 20111010
  Serious: No
  Sender: FDA-Public Use
  Company Number: US-PFIZER INC-2011099714

PATIENT
  Sex: Male
  Weight: 81.633 kg

DRUGS (10)
  1. SERTRALINE [Concomitant]
     Dosage: 100 MG, UNK
  2. BENAZEPRIL [Concomitant]
     Dosage: 5 MG, UNK
  3. SIMVASTATIN [Concomitant]
     Dosage: 80 MG, UNK
  4. AMBIEN [Concomitant]
     Dosage: 10 MG, UNK
  5. WELLBUTRIN XL [Concomitant]
     Dosage: 300 MG, UNK
  6. SUTENT [Suspect]
     Dosage: 50 MG, 1CAPSULE EVERY NIGHT AT BED TIME FOR 4 WEEKS ON THEN 2 WEEKS OFF
     Route: 048
  7. ACTOS [Concomitant]
     Dosage: 45 MG, UNK
  8. VERAPAMIL - SLOW RELEASE [Concomitant]
     Dosage: 100 MG, UNK
  9. METFORMIN [Concomitant]
     Dosage: 1000 MG, UNK
  10. LORTAB [Concomitant]
     Dosage: 5-500 MG

REACTIONS (1)
  - HEADACHE [None]
